FAERS Safety Report 8505824-7 (Version None)
Quarter: 2012Q3

REPORT INFORMATION
  Report Type: 
  Country: None (occurrence: None)
  Receive Date: 20120712
  Receipt Date: 20120709
  Transmission Date: 20120928
  Serious: Yes (Other)
  Sender: FDA-Public Use
  Company Number: GB-JNJFOC-20120509154

PATIENT
  Sex: Female

DRUGS (4)
  1. OXYBUTYNIN CHLORIDE [Suspect]
     Indication: POLLAKIURIA
     Route: 048
     Dates: start: 20120428, end: 20120502
  2. PAIN KILLERS [Concomitant]
     Indication: PRODUCT USED FOR UNKNOWN INDICATION
     Route: 065
  3. MORPHINE [Concomitant]
     Indication: PRODUCT USED FOR UNKNOWN INDICATION
     Route: 065
  4. OXYBUTYNIN CHLORIDE [Suspect]
     Indication: INCONTINENCE
     Route: 048
     Dates: start: 20120428, end: 20120502

REACTIONS (10)
  - RASH GENERALISED [None]
  - PAIN [None]
  - CHEST PAIN [None]
  - NAUSEA [None]
  - WOUND [None]
  - VISION BLURRED [None]
  - VOMITING [None]
  - MALAISE [None]
  - VISUAL IMPAIRMENT [None]
  - DIZZINESS [None]
